FAERS Safety Report 13427658 (Version 1)
Quarter: 2017Q2

REPORT INFORMATION
  Report Type: Report from Study
  Country: BG (occurrence: BG)
  Receive Date: 20170411
  Receipt Date: 20170411
  Transmission Date: 20170830
  Serious: Yes (Death, Hospitalization)
  Sender: FDA-Public Use
  Company Number: BG-BAYER-2017-060954

PATIENT
  Age: 77 Year
  Sex: Male

DRUGS (1)
  1. NEXAVAR [Suspect]
     Active Substance: SORAFENIB
     Indication: RENAL CANCER
     Dosage: 400 MG, BID
     Route: 048
     Dates: start: 20170104

REACTIONS (1)
  - Cardiovascular disorder [Fatal]
